FAERS Safety Report 8379132-1 (Version None)
Quarter: 2012Q1

REPORT INFORMATION
  Report Type: 
  Country: None (occurrence: None)
  Receive Date: 20120323
  Receipt Date: 20111206
  Transmission Date: 20120608
  Serious: Yes (Hospitalization)
  Sender: FDA-Public Use
  Company Number: 163-21880-11032846

PATIENT
  Age: 65 Year
  Sex: Male

DRUGS (16)
  1. SENOKOT (SENNA FRUIT) (UNKNOWN) [Concomitant]
  2. RESTORIL (TEMAZEPAM) (UNKNOWN) [Concomitant]
  3. VICODIN [Concomitant]
  4. NEURONTIN [Concomitant]
  5. FLOMAX (TAMSULOSIN HYDROCHLORIDE) (UNKNOWN) [Concomitant]
  6. ACYCLOVIR (ACICLOVIR) (UNKNOWN) [Concomitant]
  7. VITAMIN D (ERGOCALCIFEROL) (UNKNOWN) [Concomitant]
  8. DULCOLAX [Concomitant]
  9. MORPHINE [Concomitant]
  10. COMPAZINE (PROCHLORPERAZINE EDISYLATE) (UNKNOWN) [Concomitant]
  11. MIRALAX (MACROGOL) (UNKNOWN) [Concomitant]
  12. REVLIMID [Suspect]
     Indication: MULTIPLE MYELOMA
     Dosage: 15 MG, DAILY X 2 WEEKS/ OFF 1 WEEK, PO
     Route: 048
     Dates: start: 20110221, end: 20110328
  13. CARDIZEM [Concomitant]
  14. XANAX [Concomitant]
  15. DECADRON [Concomitant]
  16. LASIX [Concomitant]

REACTIONS (4)
  - CONSTIPATION [None]
  - RASH [None]
  - GASTRITIS [None]
  - ABDOMINAL PAIN [None]
